FAERS Safety Report 6090991-8 (Version None)
Quarter: 2009Q1

REPORT INFORMATION
  Report Type: 
  Country: None (occurrence: None)
  Receive Date: 20090218
  Receipt Date: 20090218
  Transmission Date: 20090719
  Serious: Yes (Other)
  Sender: FDA-Public Use
  Company Number: None

PATIENT
  Age: 31 Year
  Sex: Female
  Weight: 106.1417 kg

DRUGS (1)
  1. SEROQUEL [Suspect]
     Indication: SCHIZOAFFECTIVE DISORDER
     Dosage: 300 MG BID PO
     Route: 048
     Dates: start: 20080910, end: 20090213

REACTIONS (2)
  - DRUG INEFFECTIVE [None]
  - TARDIVE DYSKINESIA [None]
